FAERS Safety Report 24382817 (Version 1)
Quarter: 2024Q4

REPORT INFORMATION
  Report Type: Report from Study
  Country: DE (occurrence: DE)
  Receive Date: 20241001
  Receipt Date: 20241001
  Transmission Date: 20250115
  Serious: Yes (Hospitalization)
  Sender: ROCHE
  Company Number: DE-ROCHE-2685006

PATIENT
  Age: 50 Year
  Sex: Female

DRUGS (6)
  1. OCRELIZUMAB [Suspect]
     Active Substance: OCRELIZUMAB
     Indication: Primary progressive multiple sclerosis
     Dosage: 600 MG FREQUENCY: 168 DAYS
     Route: 042
     Dates: start: 20200915
  2. OCRELIZUMAB [Suspect]
     Active Substance: OCRELIZUMAB
     Route: 042
     Dates: start: 20200915
  3. OCRELIZUMAB [Suspect]
     Active Substance: OCRELIZUMAB
     Route: 042
  4. COMIRNATY (TOZINAMERAN) [Suspect]
     Active Substance: TOZINAMERAN
     Indication: Product used for unknown indication
     Route: 065
     Dates: end: 20210609
  5. SPIKEVAX [Suspect]
     Active Substance: CX-046684
     Indication: Product used for unknown indication
     Route: 065
  6. LAVENDER OIL [Concomitant]
     Active Substance: LAVENDER OIL

REACTIONS (16)
  - Fatigue [Recovered/Resolved]
  - Feeling drunk [Recovered/Resolved]
  - Pain in extremity [Recovering/Resolving]
  - Muscular weakness [Recovering/Resolving]
  - Immunisation reaction [Recovered/Resolved]
  - Palmar erythema [Recovered/Resolved]
  - Feeling hot [Recovered/Resolved]
  - Dizziness [Recovered/Resolved]
  - Paraesthesia [Recovering/Resolving]
  - Stress [Recovering/Resolving]
  - Memory impairment [Not Recovered/Not Resolved]
  - Alopecia [Recovering/Resolving]
  - Hypoaesthesia [Not Recovered/Not Resolved]
  - Eye pain [Recovered/Resolved]
  - COVID-19 [Not Recovered/Not Resolved]
  - Colitis [Recovering/Resolving]

NARRATIVE: CASE EVENT DATE: 20200915
